FAERS Safety Report 4427226-5 (Version None)
Quarter: 2004Q3

REPORT INFORMATION
  Report Type: 
  Country: None (occurrence: None)
  Receive Date: 20040817
  Receipt Date: 20040809
  Transmission Date: 20050211
  Serious: Yes (Hospitalization)
  Sender: FDA-Public Use
  Company Number: SE-JNJFOC-20040803024

PATIENT
  Age: 38 Year
  Sex: Female

DRUGS (1)
  1. REMICADE [Suspect]
     Indication: RHEUMATOID ARTHRITIS
     Route: 042

REACTIONS (7)
  - ABDOMINAL PAIN [None]
  - DYSPNOEA [None]
  - FLUSHING [None]
  - HEART RATE DECREASED [None]
  - HYPOXIA [None]
  - INFUSION RELATED REACTION [None]
  - OXYGEN SATURATION DECREASED [None]
